FAERS Safety Report 18506983 (Version 2)
Quarter: 2020Q4

REPORT INFORMATION
  Report Type: Spontaneous
  Country: US (occurrence: US)
  Receive Date: 20201116
  Receipt Date: 20201120
  Transmission Date: 20210114
  Serious: Yes (Other)
  Sender: FDA-Public Use
  Company Number: US-PFIZER INC-2020447688

PATIENT
  Age: 71 Year
  Sex: Female
  Weight: 60.33 kg

DRUGS (3)
  1. VITAMIN B12 [COBAMAMIDE] [Concomitant]
     Dosage: UNK
  2. FOLIC ACID. [Suspect]
     Active Substance: FOLIC ACID
     Dosage: UNK
  3. CHANTIX [Suspect]
     Active Substance: VARENICLINE TARTRATE
     Indication: SMOKING CESSATION THERAPY
     Dosage: UNK

REACTIONS (3)
  - Foreign body in throat [Unknown]
  - Abdominal pain upper [Unknown]
  - Vomiting [Recovered/Resolved]
